FAERS Safety Report 17247424 (Version 2)
Quarter: 2020Q1

REPORT INFORMATION
  Report Type: Spontaneous
  Country: FR (occurrence: FR)
  Receive Date: 20200108
  Receipt Date: 20200206
  Transmission Date: 20200409
  Serious: Yes (Hospitalization, Other)
  Sender: FDA-Public Use
  Company Number: FR-MYLANLABS-2020M1001559

PATIENT
  Age: 68 Year
  Sex: Male

DRUGS (6)
  1. TIAPRIDE                           /00435702/ [Concomitant]
     Indication: SEDATION
     Dosage: UNK
     Dates: start: 20150529, end: 20150531
  2. NUCTALON [Suspect]
     Active Substance: ESTAZOLAM
     Indication: COGNITIVE DISORDER
     Dosage: 2 MG, UNK
     Route: 048
     Dates: end: 20150529
  3. EXELON [Concomitant]
     Active Substance: RIVASTIGMINE TARTRATE
     Indication: COGNITIVE DISORDER
     Dosage: UNK
     Dates: end: 20150529
  4. RISPERDAL [Concomitant]
     Active Substance: RISPERIDONE
     Indication: PRODUCT USED FOR UNKNOWN INDICATION
     Dosage: UNK
     Route: 065
     Dates: start: 20150529, end: 20150529
  5. PAROXETINE. [Concomitant]
     Active Substance: PAROXETINE
     Indication: COGNITIVE DISORDER
     Dosage: UNK
     Dates: end: 20150529
  6. ALPRAZOLAM. [Suspect]
     Active Substance: ALPRAZOLAM
     Indication: COGNITIVE DISORDER
     Dosage: UNK
     Route: 048
     Dates: end: 20150529

REACTIONS (3)
  - Agitation [Recovered/Resolved]
  - Off label use [Unknown]
  - Seizure [Recovered/Resolved]

NARRATIVE: CASE EVENT DATE: 20150531
